FAERS Safety Report 6750475-8 (Version None)
Quarter: 2010Q2

REPORT INFORMATION
  Report Type: 
  Country: None (occurrence: None)
  Receive Date: 20100527
  Receipt Date: 20090616
  Transmission Date: 20101027
  Serious: Yes (Other)
  Sender: FDA-Public Use
  Company Number: 2009JP000916

PATIENT
  Age: 8 Year
  Sex: Female
  Weight: 22.9 kg

DRUGS (22)
  1. FUNGUARD (MICAFUNGIN) INJECTION [Suspect]
     Indication: INFECTION PROPHYLAXIS
     Dosage: 25 MG, UID/QD, IV DRIP
     Route: 041
     Dates: start: 20080108, end: 20080215
  2. METHOTREXATE [Suspect]
     Indication: ALLOGENIC BONE MARROW TRANSPLANTATION THERAPY
     Dosage: 10 MG/M2, /D), 7 MG/M2,  /D )
     Dates: start: 20080117, end: 20080117
  3. METHOTREXATE [Suspect]
     Indication: ALLOGENIC BONE MARROW TRANSPLANTATION THERAPY
     Dosage: 10 MG/M2, /D), 7 MG/M2,  /D )
     Dates: start: 20080119, end: 20080119
  4. METHOTREXATE [Suspect]
     Indication: ALLOGENIC BONE MARROW TRANSPLANTATION THERAPY
     Dosage: 10 MG/M2, /D), 7 MG/M2,  /D )
     Dates: start: 20080122, end: 20080122
  5. SANDIMMUNE [Suspect]
     Indication: ALLOGENIC BONE MARROW TRANSPLANTATION THERAPY
     Dosage: 138 MG,  /D,  69 MG,  /D,
     Dates: start: 20080115, end: 20080214
  6. SANDIMMUNE [Suspect]
     Indication: ALLOGENIC BONE MARROW TRANSPLANTATION THERAPY
     Dosage: 138 MG,  /D,  69 MG,  /D,
     Dates: start: 20080215, end: 20080215
  7. COTRIM [Concomitant]
  8. FLUDARA [Concomitant]
  9. CYCLOPHOSPHAMIDE [Concomitant]
  10. AZUNOL (SODIUM GUALENATE) TABLET [Concomitant]
  11. LEVOFLOXACIN [Concomitant]
  12. ZOVIRAX (ACICLOVIR) GRANULE [Concomitant]
  13. TAMIFLU (OSELTAMIVIR) DRY SYRUP [Concomitant]
  14. TAMIFLU (OSELTAMIVIR) CAPSULE [Concomitant]
  15. FRAGMIN [Concomitant]
  16. KCL (POTASSIUM CHLORIDE) INJECTION [Concomitant]
  17. TAZOCIN (PIPERACILLIN SODIUM, TAZOBACTAM SODIUM) INJECTION [Concomitant]
  18. TOBRACIN (TOBRAMYCIN) INJECTION [Concomitant]
  19. KYTRIL (GRANISETRON) INJECTION [Concomitant]
  20. PRIMPERAN (METOCLOPRAMIDE) INJECTION [Concomitant]
  21. POLARAMIN (DEXCHLORPHENIRAMINE MALEATE) INJECTION [Concomitant]
  22. SOLU-CORTEF [Concomitant]

REACTIONS (8)
  - ALANINE AMINOTRANSFERASE INCREASED [None]
  - ASPARTATE AMINOTRANSFERASE INCREASED [None]
  - BLOOD ALKALINE PHOSPHATASE INCREASED [None]
  - BONE MARROW TRANSPLANT [None]
  - ENGRAFTMENT SYNDROME [None]
  - GAMMA-GLUTAMYLTRANSFERASE INCREASED [None]
  - HEPATIC FUNCTION ABNORMAL [None]
  - RESPIRATORY DISORDER [None]
